FAERS Safety Report 5228895-2 (Version None)
Quarter: 2007Q1

REPORT INFORMATION
  Report Type: 
  Country: None (occurrence: None)
  Receive Date: 20070205
  Receipt Date: 20070129
  Transmission Date: 20070707
  Serious: Yes (Hospitalization)
  Sender: FDA-Public Use
  Company Number: FR-SHR-FR-2006-036529

PATIENT
  Age: 49 Year
  Sex: Female
  Weight: 57 kg

DRUGS (3)
  1. MIRENA [Suspect]
     Dosage: 20 A?G/DAY, CONT
     Route: 015
     Dates: start: 19980924, end: 20010101
  2. MIRENA [Suspect]
     Dosage: 20 A?G/DAY, CONT
     Route: 015
     Dates: start: 20011224, end: 20060313
  3. LEVOTHYROXINE SODIUM [Concomitant]
     Dosage: 75 A?G, 1X/DAY
     Route: 048

REACTIONS (2)
  - BREAST CANCER [None]
  - PALPATORY FINDING ABNORMAL [None]
